FAERS Safety Report 25787689 (Version 2)
Quarter: 2025Q3

REPORT INFORMATION
  Report Type: Spontaneous
  Country: EU (occurrence: EU)
  Receive Date: 20250910
  Receipt Date: 20250922
  Transmission Date: 20251020
  Serious: Yes (Hospitalization)
  Sender: TEVA
  Company Number: EU-TEVA-VS-3369047

PATIENT
  Age: 13 Year
  Sex: Female

DRUGS (16)
  1. CLOZAPINE [Suspect]
     Active Substance: CLOZAPINE
     Indication: Bipolar I disorder
     Route: 065
     Dates: start: 20221007, end: 20221016
  2. CLOZAPINE [Suspect]
     Active Substance: CLOZAPINE
     Indication: Bipolar I disorder
     Route: 065
     Dates: start: 20220826, end: 20220901
  3. CLOZAPINE [Suspect]
     Active Substance: CLOZAPINE
     Indication: Bipolar I disorder
     Route: 065
     Dates: start: 20221024, end: 20221026
  4. CLOZAPINE [Suspect]
     Active Substance: CLOZAPINE
     Indication: Bipolar I disorder
     Route: 065
     Dates: start: 20220414, end: 20220418
  5. CLOZAPINE [Suspect]
     Active Substance: CLOZAPINE
     Indication: Bipolar I disorder
     Route: 065
     Dates: start: 20220923, end: 20220929
  6. CLOZAPINE [Suspect]
     Active Substance: CLOZAPINE
     Indication: Bipolar I disorder
     Route: 065
     Dates: start: 20220930, end: 20221006
  7. CLOZAPINE [Suspect]
     Active Substance: CLOZAPINE
     Indication: Bipolar I disorder
     Route: 065
     Dates: start: 20220902, end: 20220908
  8. CLOZAPINE [Suspect]
     Active Substance: CLOZAPINE
     Indication: Bipolar I disorder
     Route: 065
     Dates: start: 20220916, end: 20220922
  9. CLOZAPINE [Suspect]
     Active Substance: CLOZAPINE
     Indication: Bipolar I disorder
     Route: 065
     Dates: start: 20220909, end: 20220915
  10. CLOZAPINE [Suspect]
     Active Substance: CLOZAPINE
     Indication: Bipolar I disorder
     Route: 065
     Dates: start: 2022, end: 2022
  11. CLOZAPINE [Suspect]
     Active Substance: CLOZAPINE
     Indication: Bipolar I disorder
     Route: 065
     Dates: start: 2022, end: 20220414
  12. CLOZAPINE [Suspect]
     Active Substance: CLOZAPINE
     Indication: Bipolar I disorder
     Route: 065
     Dates: start: 20221017, end: 20221023
  13. CLOZAPINE [Suspect]
     Active Substance: CLOZAPINE
     Indication: Bipolar I disorder
     Route: 065
     Dates: start: 20221027, end: 20221101
  14. HALOPERIDOL [Concomitant]
     Active Substance: HALOPERIDOL
     Indication: Bipolar I disorder
     Dosage: GRADUALLY DECREASED
     Route: 065
     Dates: start: 2022
  15. HALOPERIDOL [Concomitant]
     Active Substance: HALOPERIDOL
     Indication: Bipolar I disorder
     Route: 065
     Dates: start: 2022, end: 2022
  16. LURASIDONE [Concomitant]
     Active Substance: LURASIDONE
     Indication: Bipolar I disorder
     Route: 065
     Dates: start: 202207, end: 2022

REACTIONS (6)
  - Tachycardia [Recovering/Resolving]
  - Weight increased [Unknown]
  - Pericardial effusion [Recovering/Resolving]
  - Mitral valve incompetence [Recovering/Resolving]
  - Myocarditis [Recovering/Resolving]
  - Pericarditis [Recovering/Resolving]

NARRATIVE: CASE EVENT DATE: 20220101
